FAERS Safety Report 13527935 (Version 2)
Quarter: 2017Q2

REPORT INFORMATION
  Report Type: Spontaneous
  Country: US (occurrence: US)
  Receive Date: 20170509
  Receipt Date: 20170525
  Transmission Date: 20170830
  Serious: No
  Sender: FDA-Public Use
  Company Number: US-PFIZER INC-2017199932

PATIENT
  Sex: Female

DRUGS (1)
  1. XELJANZ XR [Suspect]
     Active Substance: TOFACITINIB CITRATE
     Indication: RHEUMATOID ARTHRITIS
     Dosage: UNK

REACTIONS (11)
  - Joint swelling [Unknown]
  - Joint range of motion decreased [Unknown]
  - Hand deformity [Unknown]
  - C-reactive protein increased [Unknown]
  - Joint contracture [Recovering/Resolving]
  - Red cell distribution width increased [Unknown]
  - Red blood cell sedimentation rate increased [Unknown]
  - Hypertension [Not Recovered/Not Resolved]
  - Joint warmth [Recovering/Resolving]
  - Mean cell haemoglobin decreased [Unknown]
  - Wrist deformity [Unknown]
